FAERS Safety Report 7124223-6 (Version None)
Quarter: 2010Q4

REPORT INFORMATION
  Report Type: 
  Country: None (occurrence: None)
  Receive Date: 20101126
  Receipt Date: 20101110
  Transmission Date: 20110411
  Serious: Yes (Other)
  Sender: FDA-Public Use
  Company Number: GXKR2010NL12471

PATIENT
  Age: 18 Year
  Sex: Male
  Weight: 50 kg

DRUGS (1)
  1. AMOXICILLIN [Suspect]
     Indication: LYMPHADENITIS
     Dosage: 500 MG, TID
     Route: 048
     Dates: start: 20100901, end: 20100901

REACTIONS (6)
  - BLOOD PRESSURE DECREASED [None]
  - CONFUSIONAL STATE [None]
  - GAIT DISTURBANCE [None]
  - HEPATIC FUNCTION ABNORMAL [None]
  - MEMORY IMPAIRMENT [None]
  - SPEECH DISORDER [None]
